FAERS Safety Report 18309072 (Version 1)
Quarter: 2020Q3

REPORT INFORMATION
  Report Type: Spontaneous
  Country: IL (occurrence: IL)
  Receive Date: 20200924
  Receipt Date: 20200924
  Transmission Date: 20201103
  Serious: Yes (Hospitalization, Other)
  Sender: FDA-Public Use
  Company Number: IL-009507513-2009ISR009024

PATIENT
  Age: 52 Year
  Sex: Male

DRUGS (10)
  1. DAUNORUBICIN [Suspect]
     Active Substance: DAUNORUBICIN
     Indication: ACUTE MYELOID LEUKAEMIA
     Dosage: 60 MILLIGRAM/SQ. METER, CYCLICAL. D1 TO D3
  2. LEVOFLOXACIN. [Suspect]
     Active Substance: LEVOFLOXACIN
     Indication: INFECTION PROPHYLAXIS
  3. POSACONAZOLE [Suspect]
     Active Substance: POSACONAZOLE
     Indication: INFECTION PROPHYLAXIS
     Route: 048
  4. MYLOTARG [Suspect]
     Active Substance: GEMTUZUMAB OZOGAMICIN
     Dosage: 5 MILLIGRAM/SQ. METER, CYCLICAL (D7)
  5. FLUDARABINE PHOSPHATE. [Suspect]
     Active Substance: FLUDARABINE PHOSPHATE
  6. CYTARABINE. [Suspect]
     Active Substance: CYTARABINE
     Dosage: 1500 MG/M2, BID. INTERMEDIATE?DOSE FOR 3 DAYS
  7. MYLOTARG [Suspect]
     Active Substance: GEMTUZUMAB OZOGAMICIN
     Indication: ACUTE MYELOID LEUKAEMIA
     Dosage: 3 MILLIGRAM/SQ. METER, CYCLICAL (D1, D4)
  8. CYTARABINE. [Suspect]
     Active Substance: CYTARABINE
     Indication: ACUTE MYELOID LEUKAEMIA
     Dosage: 200 MILLIGRAM/SQ. METER, CYCLICAL D1 TO D7 (ARAC)
  9. ACYCLOVIR. [Suspect]
     Active Substance: ACYCLOVIR
     Indication: INFECTION PROPHYLAXIS
  10. BUSULFAN. [Suspect]
     Active Substance: BUSULFAN

REACTIONS (9)
  - Febrile neutropenia [Unknown]
  - General physical health deterioration [Unknown]
  - Mucosal inflammation [Unknown]
  - Hypoxia [Unknown]
  - Septic shock [Unknown]
  - Acute graft versus host disease in skin [Unknown]
  - Pyrexia [Unknown]
  - Acute respiratory distress syndrome [Recovering/Resolving]
  - Dyspnoea [Unknown]
